FAERS Safety Report 23369598 (Version 2)
Quarter: 2024Q1

REPORT INFORMATION
  Report Type: Spontaneous
  Country: CH (occurrence: CH)
  Receive Date: 20240105
  Receipt Date: 20240105
  Transmission Date: 20240409
  Serious: Yes (Other)
  Sender: FDA-Public Use
  Company Number: CH-TEVA-VS-3139514

PATIENT
  Age: 26 Year

DRUGS (2)
  1. FINGOLIMOD [Suspect]
     Active Substance: FINGOLIMOD
     Route: 065
     Dates: start: 202002
  2. MODAFINIL [Suspect]
     Active Substance: MODAFINIL
     Route: 065

REACTIONS (3)
  - Central nervous system lesion [Unknown]
  - Mental fatigue [Unknown]
  - Off label use [Unknown]
